FAERS Safety Report 21761805 (Version 1)
Quarter: 2022Q4

REPORT INFORMATION
  Report Type: Spontaneous
  Country: BE (occurrence: BE)
  Receive Date: 20221221
  Receipt Date: 20221221
  Transmission Date: 20230113
  Serious: Yes (Death, Life-Threatening, Other)
  Sender: FDA-Public Use
  Company Number: BE-SA-2022SA509129

PATIENT
  Age: 64 Year
  Sex: Male

DRUGS (7)
  1. ENOXAPARIN SODIUM [Suspect]
     Active Substance: ENOXAPARIN SODIUM
     Indication: Cerebrovascular accident
     Dosage: 60 MG, BID
     Dates: start: 202012
  2. ENOXAPARIN SODIUM [Suspect]
     Active Substance: ENOXAPARIN SODIUM
     Indication: Endocarditis noninfective
  3. ENOXAPARIN SODIUM [Suspect]
     Active Substance: ENOXAPARIN SODIUM
     Indication: Cerebrovascular accident
  4. DABIGATRAN [Concomitant]
     Active Substance: DABIGATRAN
     Indication: Cerebrovascular accident
     Dosage: 150 MG, BID
     Dates: start: 202012, end: 202012
  5. DABIGATRAN [Concomitant]
     Active Substance: DABIGATRAN
     Indication: Cerebral ischaemia
  6. CLOPIDOGREL [Concomitant]
     Active Substance: CLOPIDOGREL BISULFATE
     Indication: Cerebrovascular accident
     Dosage: 75 MG
     Dates: start: 202012, end: 202012
  7. CLOPIDOGREL [Concomitant]
     Active Substance: CLOPIDOGREL BISULFATE
     Indication: Cerebral ischaemia

REACTIONS (3)
  - Cerebrovascular accident [Fatal]
  - Cerebral ischaemia [Fatal]
  - Drug ineffective [Fatal]

NARRATIVE: CASE EVENT DATE: 20201201
